FAERS Safety Report 8094585-4 (Version None)
Quarter: 2012Q1

REPORT INFORMATION
  Report Type: 
  Country: None (occurrence: None)
  Receive Date: 20120131
  Receipt Date: 20120124
  Transmission Date: 20120608
  Serious: No
  Sender: FDA-Public Use
  Company Number: US-PFIZER INC-2012020358

PATIENT

DRUGS (2)
  1. ATGAM [Suspect]
     Indication: APLASTIC ANAEMIA
     Dosage: UNK
     Route: 042
     Dates: start: 20120124
  2. PLATELETS, HUMAN BLOOD [Concomitant]

REACTIONS (2)
  - INFUSION RELATED REACTION [None]
  - DRUG INTOLERANCE [None]
